FAERS Safety Report 10884230 (Version 1)
Quarter: 2015Q1

REPORT INFORMATION
  Report Type: Spontaneous
  Country: US (occurrence: US)
  Receive Date: 20150304
  Receipt Date: 20150304
  Transmission Date: 20150721
  Serious: No
  Sender: FDA-Public Use
  Company Number: US-ASTRAZENECA-2015SE18210

PATIENT
  Sex: Male
  Weight: 98 kg

DRUGS (8)
  1. METOPROLOL [Concomitant]
     Active Substance: METOPROLOL
  2. GLUCOSAMINE [Concomitant]
     Active Substance: GLUCOSAMINE
  3. LIPITOR [Suspect]
     Active Substance: ATORVASTATIN CALCIUM
     Indication: BLOOD CHOLESTEROL INCREASED
     Route: 065
     Dates: start: 2009
  4. ASPIRIN. [Concomitant]
     Active Substance: ASPIRIN
  5. CRESTOR [Suspect]
     Active Substance: ROSUVASTATIN CALCIUM
     Indication: BLOOD CHOLESTEROL ABNORMAL
     Route: 048
  6. NIACIN. [Concomitant]
     Active Substance: NIACIN
  7. VITAMIN AND MINERAL SUPPLEMENT [Concomitant]
  8. FISH OIL [Concomitant]
     Active Substance: FISH OIL

REACTIONS (3)
  - Blood pressure abnormal [Unknown]
  - Arthropathy [Unknown]
  - Drug ineffective [Unknown]
